FAERS Safety Report 8782821 (Version 1)
Quarter: 2012Q4

REPORT INFORMATION
  Report Type: 
  Country: US (occurrence: US)
  Receive Date: 20120913
  Receipt Date: 20120913
  Transmission Date: 20130627
  Serious: No
  Sender: FDA-Public Use
  Company Number: US-VERTEX PHARMACEUTICAL INC.-AE-2012-009863

PATIENT
  Age: 25 Year
  Sex: Female
  Weight: 53.57 kg

DRUGS (9)
  1. INCIVEK [Suspect]
     Indication: HEPATITIS C
     Route: 048
  2. INCIVEK [Suspect]
     Route: 048
  3. PEGASYS [Concomitant]
     Indication: HEPATITIS C
  4. PEGASYS [Concomitant]
  5. RIBAVIRIN [Concomitant]
     Indication: HEPATITIS C
  6. RIBAVIRIN [Concomitant]
  7. PAXIL [Concomitant]
  8. PAXIL [Concomitant]
  9. LITHIUM CARB [Concomitant]

REACTIONS (6)
  - Pollakiuria [Unknown]
  - Headache [Unknown]
  - Depression [Unknown]
  - Fatigue [Unknown]
  - Asthenia [Unknown]
  - Anaemia [Unknown]
